FAERS Safety Report 21861232 (Version 2)
Quarter: 2023Q1

REPORT INFORMATION
  Report Type: Spontaneous
  Country: JP (occurrence: JP)
  Receive Date: 20230113
  Receipt Date: 20230217
  Transmission Date: 20230417
  Serious: Yes (Hospitalization, Other)
  Sender: FDA-Public Use
  Company Number: JP-OTSUKA-2023_000807

PATIENT
  Sex: Male

DRUGS (4)
  1. SAMSCA [Suspect]
     Active Substance: TOLVAPTAN
     Indication: Cardiac failure chronic
     Dosage: 7.5MG/DAY
     Route: 065
  2. SAMSCA [Suspect]
     Active Substance: TOLVAPTAN
     Dosage: DOSE INCREASED
     Route: 065
  3. LASIX [Concomitant]
     Active Substance: FUROSEMIDE
     Indication: Product used for unknown indication
     Dosage: UNK
     Route: 065
  4. SPIRONOLACTONE [Concomitant]
     Active Substance: SPIRONOLACTONE
     Indication: Product used for unknown indication
     Dosage: UNK
     Route: 065

REACTIONS (1)
  - Cardiac failure [Unknown]
